FAERS Safety Report 25257235 (Version 1)
Quarter: 2025Q2

REPORT INFORMATION
  Report Type: Spontaneous
  Country: US (occurrence: US)
  Receive Date: 20250430
  Receipt Date: 20250430
  Transmission Date: 20250716
  Serious: No
  Sender: ELI LILLY AND COMPANY
  Company Number: US-ELI_LILLY_AND_COMPANY-US202504024562

PATIENT
  Age: 42 Year
  Sex: Male

DRUGS (1)
  1. HUMALOG [Suspect]
     Active Substance: INSULIN LISPRO
     Indication: Product used for unknown indication
     Route: 065

REACTIONS (7)
  - Pollakiuria [Unknown]
  - Dizziness [Unknown]
  - Illness [Unknown]
  - Headache [Unknown]
  - Blood glucose decreased [Unknown]
  - Therapeutic product effect delayed [Unknown]
  - Blood glucose increased [Unknown]
